FAERS Safety Report 10093000 (Version 1)
Quarter: 2014Q2

REPORT INFORMATION
  Report Type: Spontaneous
  Country: US (occurrence: US)
  Receive Date: 20140421
  Receipt Date: 20140421
  Transmission Date: 20141212
  Serious: No
  Sender: FDA-Public Use
  Company Number: US-SA-2013SA115445

PATIENT
  Age: 36 Year
  Sex: Female

DRUGS (2)
  1. ALLEGRA [Suspect]
     Indication: SINUS CONGESTION
     Route: 048
     Dates: start: 201310
  2. ALLEGRA [Suspect]
     Indication: EAR DISCOMFORT
     Route: 048
     Dates: start: 201310

REACTIONS (5)
  - Feeling abnormal [Not Recovered/Not Resolved]
  - Rhinorrhoea [Not Recovered/Not Resolved]
  - Ear discomfort [Not Recovered/Not Resolved]
  - Head discomfort [Not Recovered/Not Resolved]
  - Drug ineffective [Unknown]
